FAERS Safety Report 9101585 (Version 1)
Quarter: 2013Q1

REPORT INFORMATION
  Report Type: Spontaneous
  Country: GR (occurrence: GR)
  Receive Date: 20130218
  Receipt Date: 20130218
  Transmission Date: 20140127
  Serious: Yes (Death, Other)
  Sender: FDA-Public Use
  Company Number: GR-SHIRE-ALL1-2013-00706

PATIENT
  Age: 71 Year
  Sex: Male

DRUGS (3)
  1. XAGRID [Suspect]
     Indication: ESSENTIAL THROMBOCYTHAEMIA
     Dosage: UNK, UNKNOWN
     Route: 048
  2. HYDROXYUREA [Concomitant]
     Indication: ESSENTIAL THROMBOCYTHAEMIA
     Dosage: UNK, UNKNOWN
     Route: 065
  3. CHLORAMBUCIL [Concomitant]
     Indication: DISEASE PROGRESSION
     Dosage: UNK, UNKNOWN
     Route: 065

REACTIONS (3)
  - Lymphocytic leukaemia [Unknown]
  - Pulmonary oedema [Fatal]
  - Cardiac failure chronic [Fatal]
